FAERS Safety Report 19950966 (Version 1)
Quarter: 2021Q4

REPORT INFORMATION
  Report Type: Spontaneous
  Country: US (occurrence: US)
  Receive Date: 20211013
  Receipt Date: 20211013
  Transmission Date: 20220303
  Serious: No
  Sender: FDA-Public Use
  Company Number: US-PFIZER INC-202100916927

PATIENT
  Age: 86 Year
  Sex: Female
  Weight: 60.77 kg

DRUGS (5)
  1. IBRANCE [Suspect]
     Active Substance: PALBOCICLIB
     Indication: Breast cancer female
     Dosage: 100 MG, CYCLIC DAILY FOR 21 DAYS
     Route: 048
     Dates: start: 202102
  2. FASLODEX [Concomitant]
     Active Substance: FULVESTRANT
     Dosage: 250 MG/5ML SYRINGE
  3. FLONASE ALLERGY RELIEF [Concomitant]
     Active Substance: FLUTICASONE PROPIONATE
     Dosage: UNK
  4. TYLENOL [Concomitant]
     Active Substance: ACETAMINOPHEN
     Dosage: 325 MG TABLET
  5. IBUPROFEN [Concomitant]
     Active Substance: IBUPROFEN
     Dosage: 100 MG TAB CHEW

REACTIONS (2)
  - Fatigue [Unknown]
  - Dyspnoea [Unknown]
